FAERS Safety Report 6235032-4 (Version None)
Quarter: 2009Q2

REPORT INFORMATION
  Report Type: 
  Country: None (occurrence: None)
  Receive Date: 20090615
  Receipt Date: 20090609
  Transmission Date: 20091009
  Serious: Yes (Other)
  Sender: FDA-Public Use
  Company Number: CA-WYE-G03833809

PATIENT
  Sex: Female

DRUGS (1)
  1. TORISEL [Suspect]
     Dosage: INTRAVENOUS
     Route: 042
     Dates: start: 20090101, end: 20090101

REACTIONS (1)
  - STEVENS-JOHNSON SYNDROME [None]
